FAERS Safety Report 25758472 (Version 2)
Quarter: 2025Q3

REPORT INFORMATION
  Report Type: Spontaneous
  Country: US (occurrence: US)
  Receive Date: 20250904
  Receipt Date: 20250922
  Transmission Date: 20251020
  Serious: Yes (Hospitalization)
  Sender: TEVA
  Company Number: US-TEVA-VS-3366863

PATIENT
  Age: 76 Year
  Sex: Male

DRUGS (5)
  1. PREDNISONE [Suspect]
     Active Substance: PREDNISONE
     Indication: Scleromalacia
     Route: 048
  2. EPINEPHRINE [Concomitant]
     Active Substance: EPINEPHRINE
     Indication: Product used for unknown indication
     Route: 050
  3. LIDOCAINE HYDROCHLORIDE [Concomitant]
     Active Substance: LIDOCAINE HYDROCHLORIDE
     Indication: Product used for unknown indication
     Route: 050
  4. MITOMYCIN [Suspect]
     Active Substance: MITOMYCIN
     Indication: Prophylaxis
     Route: 050
  5. MITOMYCIN [Suspect]
     Active Substance: MITOMYCIN
     Indication: Prophylaxis
     Route: 050

REACTIONS (4)
  - Scleromalacia [Unknown]
  - Treatment failure [Unknown]
  - Off label use [Unknown]
  - Corneal epithelial microcysts [Unknown]
